FAERS Safety Report 23411449 (Version 1)
Quarter: 2024Q1

REPORT INFORMATION
  Report Type: Spontaneous
  Country: US (occurrence: None)
  Receive Date: 20240116
  Receipt Date: 20240116
  Transmission Date: 20240410
  Serious: Yes (Life-Threatening, Other)
  Sender: FDA-Public Use
  Company Number: None

PATIENT
  Sex: 0

DRUGS (6)
  1. CEFAZOLIN [Suspect]
     Active Substance: CEFAZOLIN
     Indication: Antibiotic prophylaxis
     Dosage: 2 G GRAM(S) ONCE INTRAVENOUS?
     Route: 042
     Dates: start: 20231010, end: 20231010
  2. PREDNISONE [Concomitant]
     Active Substance: PREDNISONE
     Dates: start: 20231010, end: 20231010
  3. SODIUM CHLORIDE [Concomitant]
     Active Substance: SODIUM CHLORIDE
     Dates: start: 20231010, end: 20231010
  4. hydrocortisone injection [Concomitant]
     Dates: start: 20231010, end: 20231010
  5. MIDAZOLAM [Concomitant]
     Active Substance: MIDAZOLAM
     Dates: start: 20231010, end: 20231010
  6. PROPOFOL [Concomitant]
     Active Substance: PROPOFOL
     Dates: start: 20231010, end: 20231012

REACTIONS (2)
  - Anaphylactic reaction [None]
  - Anaphylactoid reaction [None]

NARRATIVE: CASE EVENT DATE: 20231010
